FAERS Safety Report 24401411 (Version 2)
Quarter: 2025Q3

REPORT INFORMATION
  Report Type: Spontaneous
  Country: US (occurrence: None)
  Receive Date: 20241007
  Receipt Date: 20250816
  Transmission Date: 20251021
  Serious: No
  Sender: ALEXION PHARMACEUTICALS
  Company Number: US-ASTRAZENECA-202409USA011605US

PATIENT
  Sex: Female

DRUGS (2)
  1. TEZSPIRE [Suspect]
     Active Substance: TEZEPELUMAB-EKKO
  2. TEZSPIRE [Suspect]
     Active Substance: TEZEPELUMAB-EKKO

REACTIONS (13)
  - Onychalgia [Unknown]
  - Pain [Unknown]
  - Arthralgia [Unknown]
  - Back pain [Unknown]
  - Bone pain [Unknown]
  - Skeletal injury [Unknown]
  - Myalgia [Unknown]
  - Neuralgia [Unknown]
  - Sleep deficit [Unknown]
  - Pain in extremity [Unknown]
  - Chest discomfort [Unknown]
  - Dyspnoea [Unknown]
  - Impaired quality of life [Unknown]
